FAERS Safety Report 5822713-7 (Version None)
Quarter: 2008Q3

REPORT INFORMATION
  Report Type: 
  Country: None (occurrence: None)
  Receive Date: 20080725
  Receipt Date: 20071101
  Transmission Date: 20090109
  Serious: No
  Sender: FDA-Public Use
  Company Number: US-AMGEN-KDL250694

PATIENT
  Sex: Male

DRUGS (7)
  1. EPOGEN [Suspect]
     Indication: RENAL FAILURE CHRONIC
  2. LISINOPRIL [Concomitant]
  3. TRICOR [Concomitant]
  4. ZOCOR [Concomitant]
  5. AMBIEN [Concomitant]
  6. GLIPIZIDE [Concomitant]
  7. PHOSLO [Concomitant]

REACTIONS (2)
  - CATHETER RELATED INFECTION [None]
  - HAEMOGLOBIN DECREASED [None]
